FAERS Safety Report 5154075-5 (Version None)
Quarter: 2006Q4

REPORT INFORMATION
  Report Type: 
  Country: None (occurrence: None)
  Receive Date: 20061116
  Receipt Date: 20061116
  Transmission Date: 20070319
  Serious: Yes (Hospitalization)
  Sender: FDA-Public Use
  Company Number: None

PATIENT
  Sex: Female
  Weight: 71.2147 kg

DRUGS (2)
  1. EFFEXOR XR [Suspect]
     Indication: BIPOLAR DISORDER
     Dosage: 300MG DAILY PO
     Route: 048
     Dates: start: 20050614, end: 20061115
  2. EFFEXOR XR [Suspect]
     Indication: DEPRESSION
     Dosage: 300MG DAILY PO
     Route: 048
     Dates: start: 20050614, end: 20061115

REACTIONS (4)
  - INCORRECT DOSE ADMINISTERED [None]
  - MANIA [None]
  - MOOD ALTERED [None]
  - SUICIDAL IDEATION [None]
